FAERS Safety Report 8820085 (Version 1)
Quarter: 2012Q4

REPORT INFORMATION
  Report Type: 
  Country: US (occurrence: US)
  Receive Date: 20121001
  Receipt Date: 20121001
  Transmission Date: 20130627
  Serious: No
  Sender: FDA-Public Use
  Company Number: US-009507513-1209USA010283

PATIENT
  Age: 73 Year
  Sex: Female

DRUGS (6)
  1. AZASITE [Suspect]
     Indication: BLEPHARITIS
     Dosage: 1 DF in each eye, bid
     Route: 047
     Dates: start: 20120911
  2. SYSTANE [Concomitant]
  3. CYMBALTA [Concomitant]
  4. EVISTA [Concomitant]
  5. PROPRANOL [Concomitant]
  6. CLONAZEPAM [Concomitant]

REACTIONS (1)
  - Rash [Not Recovered/Not Resolved]
